APPROVED DRUG PRODUCT: METHOCARBAMOL
Active Ingredient: METHOCARBAMOL
Strength: 750MG
Dosage Form/Route: TABLET;ORAL
Application: A213967 | Product #001 | TE Code: AA
Applicant: AUROBINDO PHARMA LTD
Approved: Aug 12, 2020 | RLD: No | RS: No | Type: RX